FAERS Safety Report 4874087-6 (Version None)
Quarter: 2005Q4

REPORT INFORMATION
  Report Type: 
  Country: None (occurrence: None)
  Receive Date: 20051201
  Receipt Date: 20050807
  Transmission Date: 20060501
  Serious: No
  Sender: FDA-Public Use
  Company Number: 2005PV000938

PATIENT
  Age: 59 Year
  Sex: Female
  Weight: 79.3795 kg

DRUGS (10)
  1. BYETTA [Suspect]
     Indication: DIABETES MELLITUS NON-INSULIN-DEPENDENT
     Dosage: 5 MCG;QD;SC
     Route: 058
     Dates: start: 20050805
  2. WELCHOL [Concomitant]
  3. ACTOS [Concomitant]
  4. GLUCOVANCE [Concomitant]
  5. CRESTOR [Concomitant]
  6. COREG [Concomitant]
  7. DIOVAN [Concomitant]
  8. LOTREL [Concomitant]
  9. NIACIN [Concomitant]
  10. MOBIC [Concomitant]

REACTIONS (3)
  - ABDOMINAL PAIN UPPER [None]
  - DECREASED APPETITE [None]
  - DIARRHOEA [None]
